FAERS Safety Report 5705217-1 (Version None)
Quarter: 2008Q2

REPORT INFORMATION
  Report Type: 
  Country: None (occurrence: None)
  Receive Date: 20080410
  Receipt Date: 20080328
  Transmission Date: 20081010
  Serious: Yes (Other)
  Sender: FDA-Public Use
  Company Number: S08-CAN-00846-01

PATIENT
  Sex: Female

DRUGS (5)
  1. ESCITALOPRAM [Suspect]
     Dates: start: 20071201, end: 20080101
  2. ESCITALOPRAM [Suspect]
     Dates: start: 20080101
  3. VALPROATE SODIUM [Concomitant]
  4. AXERT [Concomitant]
  5. CLONAZEPAM [Concomitant]

REACTIONS (2)
  - LOSS OF CONSCIOUSNESS [None]
  - PETIT MAL EPILEPSY [None]
